FAERS Safety Report 10420579 (Version 1)
Quarter: 2014Q3

REPORT INFORMATION
  Report Type: Spontaneous
  Country: US (occurrence: None)
  Receive Date: 20140714
  Receipt Date: 20140714
  Transmission Date: 20150326
  Serious: No
  Sender: FDA-Public Use
  Company Number: 2014US003325

PATIENT
  Age: 67 Year
  Sex: Female

DRUGS (4)
  1. AZCOR (AMLODIPINE BESILATE, OLMESARTAN MEDOXIMIL) [Concomitant]
  2. ASA (ASA) [Concomitant]
  3. ICLUSIG [Suspect]
     Active Substance: PONATINIB
     Indication: CHRONIC MYELOID LEUKAEMIA
     Route: 048
  4. CRESTOR [Concomitant]
     Active Substance: ROSUVASTATIN CALCIUM

REACTIONS (1)
  - Eczema [None]
